FAERS Safety Report 26179086 (Version 1)
Quarter: 2025Q4

REPORT INFORMATION
  Report Type: Spontaneous
  Country: EU (occurrence: EU)
  Receive Date: 20251219
  Receipt Date: 20251219
  Transmission Date: 20260117
  Serious: Yes (Hospitalization)
  Sender: RANBAXY
  Company Number: EU-AFSSAPS-NY2025001353

PATIENT
  Age: 81 Year
  Sex: Female
  Weight: 67 kg

DRUGS (12)
  1. LENALIDOMIDE [Suspect]
     Active Substance: LENALIDOMIDE
     Indication: Plasma cell myeloma
     Dosage: 15 MILLIGRAM, DAILY, 1 TO 8 P.M.
     Route: 048
     Dates: start: 20250219
  2. DARZALEX [Suspect]
     Active Substance: DARATUMUMAB
     Indication: Plasma cell myeloma
     Dosage: 1800 MILLIGRAM, WEEKLY, 1 TO 9 HOURS FOR ONE DAY, FOLLOWED BY A 6-DAY BREAK
     Route: 040
     Dates: start: 20250219
  3. VALACYCLOVIR HYDROCHLORIDE [Concomitant]
     Active Substance: VALACYCLOVIR HYDROCHLORIDE
     Indication: Opportunistic infection prophylaxis
     Dosage: 1 DOSAGE FORM, BID, 1 TO 8AM, 1 TO 8PM
     Route: 048
     Dates: start: 20250219
  4. BACTRIM [Concomitant]
     Active Substance: SULFAMETHOXAZOLE\TRIMETHOPRIM
     Indication: Opportunistic infection prophylaxis
     Dosage: 1 DOSAGE FORM, QOD, 1 TABLET ON MONDAY, WEDNESDAY AND FRIDAY
     Route: 048
     Dates: start: 20250219
  5. LEUCOVORIN CALCIUM [Concomitant]
     Active Substance: LEUCOVORIN CALCIUM
     Indication: Vitamin supplementation
     Dosage: 1 DOSAGE FORM, WEEKLY, 1 TABLET IN THE MORNING, ONCE A WEEK FEEDBACK
     Route: 048
  6. ELIQUIS [Concomitant]
     Active Substance: APIXABAN
     Indication: Thrombosis prophylaxis
     Dosage: 1 DOSAGE FORM, BID
     Route: 048
     Dates: start: 20250219
  7. LEVOTHYROXINE [Concomitant]
     Active Substance: LEVOTHYROXINE
     Indication: Hypothyroidism
     Dosage: 25 MCG, DAILY
     Route: 048
     Dates: start: 20250219
  8. LERCANIDIPINE [Concomitant]
     Active Substance: LERCANIDIPINE
     Indication: Hypertension
     Dosage: 20 MCG, DAILY, 1 TO 8 H
     Route: 048
     Dates: start: 20250219
  9. TANGANILPRO [Concomitant]
     Indication: Meniere^s disease
     Dosage: 2 DOSAGE FORM, TID
     Route: 048
     Dates: start: 20250219
  10. DOLIPRANE PRO [Concomitant]
     Indication: Drug toxicity prophylaxis
     Dosage: 1000 MILLIGRAM, CYCLICAL
     Route: 048
     Dates: start: 20250219
  11. DESLORATADINE [Concomitant]
     Active Substance: DESLORATADINE
     Indication: Drug toxicity prophylaxis
     Dosage: 5 MILLIGRAM, CYCLICAL
     Route: 048
     Dates: start: 20250219
  12. DEXAMETHASONE [Concomitant]
     Active Substance: DEXAMETHASONE
     Indication: Drug toxicity prophylaxis
     Dosage: 20 MILLIGRAM, CYCLICAL
     Route: 048
     Dates: start: 20250219

REACTIONS (6)
  - Tremor [Recovering/Resolving]
  - Decreased appetite [Not Recovered/Not Resolved]
  - Pain [Recovered/Resolved]
  - Constipation [Not Recovered/Not Resolved]
  - Fatigue [Not Recovered/Not Resolved]
  - Nausea [Recovered/Resolved]

NARRATIVE: CASE EVENT DATE: 20250304
